FAERS Safety Report 23055403 (Version 6)
Quarter: 2024Q1

REPORT INFORMATION
  Report Type: Spontaneous
  Country: DE (occurrence: DE)
  Receive Date: 20231011
  Receipt Date: 20240102
  Transmission Date: 20240409
  Serious: No
  Sender: FDA-Public Use
  Company Number: DE-BAYER-2023A142177

PATIENT
  Sex: Female

DRUGS (1)
  1. LEVONORGESTREL [Suspect]
     Active Substance: LEVONORGESTREL
     Dosage: 14?G/DAY
     Route: 015

REACTIONS (4)
  - Device breakage [Not Recovered/Not Resolved]
  - Complication of device insertion [None]
  - Device use error [None]
  - Uterine cervix stenosis [None]
